FAERS Safety Report 25852629 (Version 1)
Quarter: 2025Q3

REPORT INFORMATION
  Report Type: Spontaneous
  Country: US (occurrence: None)
  Receive Date: 20250925
  Receipt Date: 20250925
  Transmission Date: 20251021
  Serious: Yes (Hospitalization)
  Sender: FDA-CTU
  Company Number: None

PATIENT
  Age: 87 Year
  Sex: Male
  Weight: 71.3 kg

DRUGS (1)
  1. LUSPATERCEPT [Suspect]
     Active Substance: LUSPATERCEPT

REACTIONS (9)
  - Mental status changes [None]
  - Lethargy [None]
  - Hypophagia [None]
  - Pyrexia [None]
  - Hypotension [None]
  - Chest X-ray abnormal [None]
  - Cardiomegaly [None]
  - Cerebral small vessel ischaemic disease [None]
  - Brain scan abnormal [None]

NARRATIVE: CASE EVENT DATE: 20250924
